FAERS Safety Report 15439088 (Version 2)
Quarter: 2018Q4

REPORT INFORMATION
  Report Type: Spontaneous
  Country: US (occurrence: US)
  Receive Date: 20180928
  Receipt Date: 20181008
  Transmission Date: 20190204
  Serious: Yes (Death, Other)
  Sender: FDA-Public Use
  Company Number: US-PFIZER INC-2018384704

PATIENT
  Sex: Male

DRUGS (1)
  1. PROCARDIA XL [Suspect]
     Active Substance: NIFEDIPINE
     Dosage: UNK

REACTIONS (6)
  - Dysphagia [Unknown]
  - Abdominal pain upper [Unknown]
  - Death [Fatal]
  - Wrong technique in product usage process [Unknown]
  - Vomiting [Unknown]
  - Haemoptysis [Unknown]
